FAERS Safety Report 7339079-6 (Version None)
Quarter: 2011Q1

REPORT INFORMATION
  Report Type: 
  Country: None (occurrence: None)
  Receive Date: 20110308
  Receipt Date: 20110304
  Transmission Date: 20110831
  Serious: Yes (Other)
  Sender: FDA-Public Use
  Company Number: FR-PFIZER INC-2011040450

PATIENT
  Sex: Female

DRUGS (2)
  1. SOMAVERT [Suspect]
     Dosage: 10 MG, UNK
  2. MINOXIDIL [Concomitant]

REACTIONS (1)
  - HEPATITIS [None]
